FAERS Safety Report 18578057 (Version 1)
Quarter: 2020Q4

REPORT INFORMATION
  Report Type: Spontaneous
  Country: FR (occurrence: FR)
  Receive Date: 20201204
  Receipt Date: 20201204
  Transmission Date: 20210114
  Serious: Yes (Other)
  Sender: FDA-Public Use
  Company Number: FR-ABBVIE-20K-056-3676476-00

PATIENT
  Age: 69 Year
  Sex: Male

DRUGS (2)
  1. KALETRA [Suspect]
     Active Substance: LOPINAVIR\RITONAVIR
     Indication: COVID-19
     Route: 048
     Dates: start: 20200312, end: 20200318
  2. AMOXICILLINE/ACIDE CLAVULANIQUE SANDOZ [Suspect]
     Active Substance: AMOXICILLIN\CLAVULANIC ACID
     Indication: SUPERINFECTION BACTERIAL
     Route: 048
     Dates: start: 20200312, end: 20200318

REACTIONS (2)
  - Atrial fibrillation [Unknown]
  - Off label use [Unknown]

NARRATIVE: CASE EVENT DATE: 20200312
